FAERS Safety Report 7999065-X (Version None)
Quarter: 2011Q4

REPORT INFORMATION
  Report Type: 
  Country: None (occurrence: None)
  Receive Date: 20111221
  Receipt Date: 20111213
  Transmission Date: 20120403
  Serious: Yes (Hospitalization, Other)
  Sender: FDA-Public Use
  Company Number: PHHY2011US51097

PATIENT
  Sex: Male

DRUGS (7)
  1. FROVA [Concomitant]
     Indication: MIGRAINE
     Dosage: 1 DF, PRN
  2. GILENYA [Suspect]
     Indication: MULTIPLE SCLEROSIS
     Dosage: 0.5 MG, QD
     Route: 048
     Dates: start: 20101123
  3. METFORMIN HCL [Concomitant]
     Indication: DIABETES MELLITUS
     Dosage: 1 DF, BID
     Route: 048
  4. GILENYA [Suspect]
     Dosage: 0.5 MG, QD
     Route: 048
  5. DIOVAN [Concomitant]
     Indication: HYPERTENSION
     Dosage: 1 DF, QD
  6. NEXIUM [Concomitant]
     Indication: GASTROOESOPHAGEAL REFLUX DISEASE
     Dosage: 1 DF, QD
     Route: 048
  7. DEPAKOTE [Concomitant]
     Indication: MIGRAINE
     Dosage: 1 DF, QHS
     Route: 048

REACTIONS (15)
  - GASTROINTESTINAL HAEMORRHAGE [None]
  - DEPRESSION [None]
  - DYSPEPSIA [None]
  - DECREASED APPETITE [None]
  - VOMITING [None]
  - PARAESTHESIA [None]
  - WEIGHT DECREASED [None]
  - HEADACHE [None]
  - DIZZINESS [None]
  - HAEMATEMESIS [None]
  - HAEMATOCHEZIA [None]
  - FATIGUE [None]
  - CHEST PAIN [None]
  - ANXIETY [None]
  - BLOOD URINE PRESENT [None]
